FAERS Safety Report 7830098-X (Version None)
Quarter: 2011Q4

REPORT INFORMATION
  Report Type: 
  Country: None (occurrence: None)
  Receive Date: 20111021
  Receipt Date: 20111012
  Transmission Date: 20120403
  Serious: Yes (Death)
  Sender: FDA-Public Use
  Company Number: US-UCBSA-043306

PATIENT
  Age: 63 Year
  Sex: Male

DRUGS (3)
  1. KEPPRA XR [Suspect]
     Indication: CONVULSION
     Dosage: 500 MG
  2. PLAVIX [Suspect]
     Indication: CORONARY ARTERY DISEASE
  3. ASPIRIN [Suspect]
     Indication: CORONARY ARTERY DISEASE

REACTIONS (4)
  - SUBDURAL HAEMATOMA [None]
  - HEAD INJURY [None]
  - FALL [None]
  - MENTAL STATUS CHANGES [None]
